FAERS Safety Report 9640350 (Version 1)
Quarter: 2013Q4

REPORT INFORMATION
  Report Type: Spontaneous
  Country: US (occurrence: US)
  Receive Date: 20131023
  Receipt Date: 20131023
  Transmission Date: 20140711
  Serious: Yes (Other)
  Sender: FDA-Public Use
  Company Number: US-FRI-1000050245

PATIENT
  Sex: Female

DRUGS (1)
  1. TEFLARO [Suspect]

REACTIONS (1)
  - Hepatic enzyme increased [Unknown]
